FAERS Safety Report 5819957-7 (Version None)
Quarter: 2008Q3

REPORT INFORMATION
  Report Type: 
  Country: None (occurrence: None)
  Receive Date: 20080721
  Receipt Date: 20080715
  Transmission Date: 20090109
  Serious: Yes (Life-Threatening, Hospitalization)
  Sender: FDA-Public Use
  Company Number: 2008SP000973

PATIENT
  Age: 21 Year
  Sex: Female
  Weight: 82.2 kg

DRUGS (10)
  1. LUNESTA [Suspect]
     Indication: INSOMNIA
     Dosage: HS; ORAL
     Route: 048
  2. REVLIMID [Suspect]
     Indication: ALVEOLAR SOFT PART SARCOMA
     Dosage: 120 MG; QD; ORAL;70 MG/M**2; QD; ORAL
     Route: 048
     Dates: start: 20080207, end: 20080301
  3. REVLIMID [Suspect]
     Indication: ALVEOLAR SOFT PART SARCOMA
     Dosage: 120 MG; QD; ORAL;70 MG/M**2; QD; ORAL
     Route: 048
     Dates: start: 20080306, end: 20080325
  4. PERCOCET [Suspect]
     Dosage: PRN; ORAL
     Route: 048
  5. OXYCONTIN [Suspect]
     Dosage: 20 MG; PRN; ORAL
     Route: 048
  6. AMBIEN [Suspect]
     Indication: SLEEP DISORDER
  7. LEXAPRO [Concomitant]
  8. GABAPENTIN [Concomitant]
  9. HYDROCODONE BITARTRATE + ACETAMINOPHEN [Concomitant]
  10. OXYCODONE HCL [Concomitant]

REACTIONS (10)
  - ACTIVATED PARTIAL THROMBOPLASTIN TIME SHORTENED [None]
  - CEREBRAL HAEMORRHAGE [None]
  - DIZZINESS [None]
  - FALL [None]
  - HEAD INJURY [None]
  - METASTASES TO CENTRAL NERVOUS SYSTEM [None]
  - ONCOLOGIC COMPLICATION [None]
  - PLATELET COUNT DECREASED [None]
  - SUBARACHNOID HAEMORRHAGE [None]
  - SUBDURAL HAEMORRHAGE [None]
